FAERS Safety Report 5781274-1 (Version None)
Quarter: 2008Q2

REPORT INFORMATION
  Report Type: 
  Country: None (occurrence: None)
  Receive Date: 20080623
  Receipt Date: 20080522
  Transmission Date: 20081010
  Serious: No
  Sender: FDA-Public Use
  Company Number: US-BAYER-200811987NA

PATIENT
  Age: 30 Year
  Sex: Female
  Weight: 57 kg

DRUGS (2)
  1. YAZ [Suspect]
     Indication: CONTRACEPTION
     Route: 048
     Dates: start: 20071101, end: 20080101
  2. XYZAL [Concomitant]
     Indication: RASH GENERALISED

REACTIONS (6)
  - BREAST TENDERNESS [None]
  - DERMATITIS ALLERGIC [None]
  - HEADACHE [None]
  - PRURITUS [None]
  - RASH [None]
  - RASH GENERALISED [None]
